FAERS Safety Report 23621572 (Version 1)
Quarter: 2024Q1

REPORT INFORMATION
  Report Type: Spontaneous
  Country: US (occurrence: US)
  Receive Date: 20240312
  Receipt Date: 20240312
  Transmission Date: 20240410
  Serious: Yes (Hospitalization, Other)
  Sender: FDA-Public Use
  Company Number: US-SUN PHARMACEUTICAL INDUSTRIES LTD-2024R1-435220

PATIENT
  Age: 53 Year
  Sex: Male

DRUGS (5)
  1. HYDROXYCHLOROQUINE [Suspect]
     Active Substance: HYDROXYCHLOROQUINE
     Indication: Severe acute respiratory syndrome
     Route: 065
  2. AZITHROMYCIN [Suspect]
     Active Substance: AZITHROMYCIN
     Indication: Severe acute respiratory syndrome
     Route: 065
  3. DEXAMETHASONE [Suspect]
     Active Substance: DEXAMETHASONE
     Indication: Severe acute respiratory syndrome
     Route: 065
  4. TOCILIZUMAB [Suspect]
     Active Substance: TOCILIZUMAB
     Indication: Severe acute respiratory syndrome
     Route: 065
  5. ATAZANAVIR [Suspect]
     Active Substance: ATAZANAVIR
     Indication: Severe acute respiratory syndrome
     Route: 065

REACTIONS (6)
  - Weight decreased [Unknown]
  - Hyperglycaemia [Unknown]
  - Polyuria [Unknown]
  - Polydipsia [Unknown]
  - Malaise [Unknown]
  - Fatigue [Unknown]
